FAERS Safety Report 25190453 (Version 1)
Quarter: 2025Q2

REPORT INFORMATION
  Report Type: Spontaneous
  Country: US (occurrence: None)
  Receive Date: 20250411
  Receipt Date: 20250411
  Transmission Date: 20250717
  Serious: Yes (Other)
  Sender: FDA-CTU
  Company Number: None

PATIENT
  Age: 89 Year
  Sex: Female

DRUGS (1)
  1. IBRANCE [Suspect]
     Active Substance: PALBOCICLIB
     Indication: Breast cancer female
     Dosage: FREQUENCY : DAILY;?
     Route: 048

REACTIONS (8)
  - Nausea [None]
  - Dysphagia [None]
  - Fatigue [None]
  - Headache [None]
  - Dry skin [None]
  - Dry mouth [None]
  - Oral discomfort [None]
  - Throat irritation [None]
